FAERS Safety Report 5406045-7 (Version None)
Quarter: 2007Q3

REPORT INFORMATION
  Report Type: 
  Country: None (occurrence: None)
  Receive Date: 20070802
  Receipt Date: 20070802
  Transmission Date: 20080115
  Serious: Yes (Other)
  Sender: FDA-Public Use
  Company Number: None

PATIENT
  Sex: Female
  Weight: 118.8424 kg

DRUGS (2)
  1. LEVOTHYROXINE SODIUM [Suspect]
     Indication: HYPOTHYROIDISM
     Dosage: 1 PO QD
     Route: 048
  2. LEVOXYL [Suspect]
     Dosage: 1 PO QD
     Route: 048

REACTIONS (1)
  - URTICARIA [None]
